FAERS Safety Report 22122024 (Version 1)
Quarter: 2023Q1

REPORT INFORMATION
  Report Type: Spontaneous
  Country: US (occurrence: None)
  Receive Date: 20230321
  Receipt Date: 20230321
  Transmission Date: 20230418
  Serious: Yes (Death)
  Sender: FDA-Public Use
  Company Number: None

PATIENT
  Age: 68 Year
  Sex: Male
  Weight: 96 kg

DRUGS (3)
  1. MIRCERA [Suspect]
     Active Substance: METHOXY POLYETHYLENE GLYCOL-EPOETIN BETA
     Indication: Anaemia of chronic disease
     Dosage: OTHER FREQUENCY : ONCE;?
     Route: 040
     Dates: start: 20230211, end: 20230304
  2. VENOFER [Concomitant]
     Active Substance: IRON SUCROSE
  3. CALCITRIOL [Concomitant]
     Active Substance: CALCITRIOL

REACTIONS (7)
  - Lip swelling [None]
  - Swelling face [None]
  - Pruritus [None]
  - Dyspnoea [None]
  - Blood pressure decreased [None]
  - Blood pressure increased [None]
  - Pulse absent [None]

NARRATIVE: CASE EVENT DATE: 20230304
